APPROVED DRUG PRODUCT: AMINOSYN-RF 5.2%
Active Ingredient: AMINO ACIDS
Strength: 5.2% (5.2GM/100ML)
Dosage Form/Route: INJECTABLE;INJECTION
Application: N018429 | Product #001
Applicant: ICU MEDICAL INC
Approved: Approved Prior to Jan 1, 1982 | RLD: No | RS: No | Type: DISCN